FAERS Safety Report 4759367-7 (Version None)
Quarter: 2005Q3

REPORT INFORMATION
  Report Type: 
  Country: None (occurrence: None)
  Receive Date: 20050826
  Receipt Date: 20050701
  Transmission Date: 20060218
  Serious: No
  Sender: FDA-Public Use
  Company Number: 211348

PATIENT
  Age: 62 Year
  Sex: Male

DRUGS (6)
  1. RAPTIVA [Suspect]
     Indication: PSORIASIS
     Dosage: 50 MG, 1/WEEK, SUBCUTANEOUS
     Route: 058
  2. TOPROL (METOPROLOL SUCCINATE) [Concomitant]
  3. ENALAPRIL MALEATE [Concomitant]
  4. METFORMIN HCL [Concomitant]
  5. LIPITOR [Concomitant]
  6. GLIPIZIDE [Concomitant]

REACTIONS (1)
  - HEPATIC STEATOSIS [None]
